FAERS Safety Report 8415914-5 (Version None)
Quarter: 2012Q2

REPORT INFORMATION
  Report Type: 
  Country: None (occurrence: None)
  Receive Date: 20120606
  Receipt Date: 20120510
  Transmission Date: 20120825
  Serious: No
  Sender: FDA-Public Use
  Company Number: SE-UCBSA-058097

PATIENT
  Sex: Male

DRUGS (1)
  1. KEPPRA [Suspect]
     Dates: start: 20100501

REACTIONS (3)
  - WEIGHT DECREASED [None]
  - ANAEMIA MEGALOBLASTIC [None]
  - DIARRHOEA [None]
